FAERS Safety Report 15322888 (Version 1)
Quarter: 2018Q3

REPORT INFORMATION
  Report Type: Spontaneous
  Country: FR (occurrence: FR)
  Receive Date: 20180827
  Receipt Date: 20180827
  Transmission Date: 20181010
  Serious: Yes (Death)
  Sender: FDA-Public Use
  Company Number: FR-JNJFOC-20180703183

PATIENT
  Age: 68 Year
  Sex: Male
  Weight: 84 kg

DRUGS (3)
  1. XARELTO [Suspect]
     Active Substance: RIVAROXABAN
     Indication: ATRIAL FIBRILLATION
     Route: 048
     Dates: end: 20180611
  2. LIPANTHYL [Interacting]
     Active Substance: FENOFIBRATE
     Indication: LIPIDS ABNORMAL
     Route: 048
     Dates: end: 20180611
  3. CORDARONE [Interacting]
     Active Substance: AMIODARONE HYDROCHLORIDE
     Indication: ATRIAL FIBRILLATION
     Route: 048
     Dates: start: 20180525

REACTIONS (2)
  - Subdural haematoma [Fatal]
  - Anticoagulation drug level increased [Fatal]

NARRATIVE: CASE EVENT DATE: 20180612
